FAERS Safety Report 8266067-8 (Version None)
Quarter: 2012Q2

REPORT INFORMATION
  Report Type: 
  Country: None (occurrence: None)
  Receive Date: 20120406
  Receipt Date: 20120330
  Transmission Date: 20120825
  Serious: Yes (Hospitalization)
  Sender: FDA-Public Use
  Company Number: CA-ABBOTT-12P-028-0907556-00

PATIENT
  Age: 89 Year
  Sex: Female
  Weight: 98 kg

DRUGS (6)
  1. RISEDRONATE SODIUM [Concomitant]
     Indication: PRODUCT USED FOR UNKNOWN INDICATION
     Route: 048
  2. ENTERIC COATED ACETYLSALICYCLIC ACID, DELAYED RELEASE [Concomitant]
     Indication: PRODUCT USED FOR UNKNOWN INDICATION
     Dosage: UNSPECIFIED
     Route: 048
  3. LORAZEPAM [Concomitant]
     Indication: PRODUCT USED FOR UNKNOWN INDICATION
     Dosage: 0.5 MILLIGRAM ONCE DAILY AS NEEDED AT HS
     Route: 048
  4. METOPROLOL TARTRATE [Concomitant]
     Indication: PRODUCT USED FOR UNKNOWN INDICATION
     Dosage: UNSPECIFIED
     Route: 048
  5. BIAXIN [Suspect]
     Indication: PRODUCT USED FOR UNKNOWN INDICATION
     Route: 048
     Dates: start: 20110601, end: 20110606
  6. BETAHISTINE [Concomitant]
     Indication: PRODUCT USED FOR UNKNOWN INDICATION
     Dosage: ONCE EVERY 8 HRS AS NEEDED
     Route: 048

REACTIONS (5)
  - HALLUCINATION [None]
  - CONFUSIONAL STATE [None]
  - HALLUCINATION, VISUAL [None]
  - DYSKINESIA [None]
  - INSOMNIA [None]
